FAERS Safety Report 25585596 (Version 1)
Quarter: 2025Q3

REPORT INFORMATION
  Report Type: Report from Study
  Country: US (occurrence: US)
  Receive Date: 20250721
  Receipt Date: 20250721
  Transmission Date: 20251021
  Serious: Yes (Hospitalization, Other)
  Sender: UCB
  Company Number: US-UCBSA-2025035123

PATIENT
  Age: 14 Year
  Sex: Female
  Weight: 23.5 kg

DRUGS (3)
  1. FINTEPLA [Suspect]
     Active Substance: FENFLURAMINE
     Indication: Lennox-Gastaut syndrome
     Dates: start: 20240208
  2. FINTEPLA [Suspect]
     Active Substance: FENFLURAMINE
     Dosage: 2.5 MILLILITER, 2X/DAY (BID)
     Dates: start: 20240217
  3. FINTEPLA [Suspect]
     Active Substance: FENFLURAMINE
     Dosage: 3.8 MILLILITER, 2X/DAY (BID)
     Dates: start: 20240506

REACTIONS (3)
  - Vagal nerve stimulator implantation [Not Recovered/Not Resolved]
  - Central venous pressure increased [Unknown]
  - Syringe issue [Unknown]

NARRATIVE: CASE EVENT DATE: 20250301
